FAERS Safety Report 4678513-7 (Version None)
Quarter: 2005Q2

REPORT INFORMATION
  Report Type: 
  Country: None (occurrence: None)
  Receive Date: 20050601
  Receipt Date: 20050523
  Transmission Date: 20051028
  Serious: Yes (Hospitalization)
  Sender: FDA-Public Use
  Company Number: US-JNJFOC-20050300228

PATIENT
  Sex: Female

DRUGS (3)
  1. DURAGESIC-100 [Suspect]
     Route: 062
     Dates: start: 20041101
  2. DURAGESIC-100 [Suspect]
     Route: 062
     Dates: start: 20041101
  3. ZOLOFT [Concomitant]
     Indication: DEPRESSION
     Route: 049

REACTIONS (10)
  - ANOREXIA [None]
  - ASTHENIA [None]
  - BRONCHOSPASM [None]
  - CHILLS [None]
  - CHRONIC OBSTRUCTIVE AIRWAYS DISEASE EXACERBATED [None]
  - CONFUSIONAL STATE [None]
  - DRY MOUTH [None]
  - IMMUNODEFICIENCY [None]
  - PNEUMONIA STAPHYLOCOCCAL [None]
  - PYREXIA [None]
